FAERS Safety Report 10543304 (Version 1)
Quarter: 2014Q4

REPORT INFORMATION
  Report Type: Report from Study
  Country: US (occurrence: US)
  Receive Date: 20141027
  Receipt Date: 20141027
  Transmission Date: 20150529
  Serious: Yes (Hospitalization)
  Sender: FDA-Public Use
  Company Number: US-ROCHE-1478865

PATIENT
  Age: 72 Year
  Sex: Female
  Weight: 60.6 kg

DRUGS (2)
  1. BEVACIZUMAB [Suspect]
     Active Substance: BEVACIZUMAB
     Indication: ENDOMETRIAL CANCER
     Dosage: OVER 30-90 MIN Q 2 WEEKS?LAST DOSE PRIOR TO SAE RECEIVED ON 05/MAY/2014
     Route: 042
  2. DASATINIB [Suspect]
     Active Substance: DASATINIB
     Indication: ENDOMETRIAL CANCER
     Dosage: LAST DOSE PRIOR TO SAE RECEIVED ON 10/MAY/2014
     Route: 048
     Dates: start: 20131029

REACTIONS (1)
  - Pancreatitis [Recovering/Resolving]

NARRATIVE: CASE EVENT DATE: 20140511
